FAERS Safety Report 5389594-X (Version None)
Quarter: 2007Q3

REPORT INFORMATION
  Report Type: 
  Country: None (occurrence: None)
  Receive Date: 20070713
  Receipt Date: 20070705
  Transmission Date: 20080115
  Serious: Yes (Hospitalization)
  Sender: FDA-Public Use
  Company Number: 2007SP013707

PATIENT
  Age: 55 Year
  Sex: Male

DRUGS (2)
  1. VIRAFERON REDIPEN (PEGINTERFERON ALFA-2B) (PEGINTERFERON ALFA-2B) [Suspect]
     Indication: HEPATITIS C
  2. REBETOL [Suspect]
     Indication: HEPATITIS C

REACTIONS (3)
  - HYPERTENSION [None]
  - PAIN IN EXTREMITY [None]
  - PULMONARY EMBOLISM [None]
